FAERS Safety Report 5576547-1 (Version None)
Quarter: 2007Q4

REPORT INFORMATION
  Report Type: 
  Country: None (occurrence: None)
  Receive Date: 20071228
  Receipt Date: 20071218
  Transmission Date: 20080405
  Serious: Yes (Hospitalization)
  Sender: FDA-Public Use
  Company Number: B0501096A

PATIENT
  Age: 35 Year
  Sex: Male

DRUGS (4)
  1. LAMIVUDINE [Suspect]
     Indication: HIV INFECTION
     Route: 065
  2. NEVIRAPINE [Suspect]
     Indication: HIV INFECTION
     Route: 065
  3. STAVUDINE [Suspect]
     Indication: HIV INFECTION
     Route: 065
  4. ACYCLOVIR [Concomitant]
     Indication: HERPES VIRUS INFECTION
     Route: 065

REACTIONS (19)
  - ABDOMINAL DISCOMFORT [None]
  - ABDOMINAL PAIN [None]
  - ALANINE AMINOTRANSFERASE INCREASED [None]
  - ANOREXIA [None]
  - ASPARTATE AMINOTRANSFERASE INCREASED [None]
  - BLOOD PHOSPHORUS INCREASED [None]
  - CYTOMEGALOVIRUS INFECTION [None]
  - GENITAL HERPES [None]
  - HEPATITIS B [None]
  - HEPATOMEGALY [None]
  - IMMUNE RECONSTITUTION SYNDROME [None]
  - JAUNDICE [None]
  - LOCAL SWELLING [None]
  - LYMPHADENOPATHY [None]
  - PANCYTOPENIA [None]
  - RETINITIS [None]
  - SPLENOMEGALY [None]
  - UVEITIS [None]
  - VISUAL DISTURBANCE [None]
